FAERS Safety Report 6785932-1 (Version None)
Quarter: 2010Q2

REPORT INFORMATION
  Report Type: 
  Country: None (occurrence: None)
  Receive Date: 20100622
  Receipt Date: 20100622
  Transmission Date: 20101027
  Serious: Yes (Other)
  Sender: FDA-Public Use
  Company Number: None

PATIENT
  Age: 42 Year
  Sex: Female
  Weight: 103.8737 kg

DRUGS (2)
  1. EFFEXOR XR [Suspect]
     Indication: BIPOLAR II DISORDER
     Dosage: 1 PILL DAILY PO
     Route: 048
     Dates: start: 20090430, end: 20090618
  2. EFFEXOR XR [Suspect]
     Indication: BIPOLAR II DISORDER
     Dosage: 1 PILL DAILY PO
     Route: 048
     Dates: start: 20090430, end: 20090618

REACTIONS (1)
  - DRUG SCREEN FALSE POSITIVE [None]
